FAERS Safety Report 14424224 (Version 1)
Quarter: 2018Q1

REPORT INFORMATION
  Report Type: Spontaneous
  Country: US (occurrence: US)
  Receive Date: 20180122
  Receipt Date: 20180122
  Transmission Date: 20180509
  Serious: Yes (Hospitalization)
  Sender: FDA-Public Use
  Company Number: None

PATIENT
  Age: 68 Year
  Sex: Male

DRUGS (13)
  1. OXYBUTYNIN. [Concomitant]
     Active Substance: OXYBUTYNIN CHLORIDE
  2. MIRTAZAPINE. [Concomitant]
     Active Substance: MIRTAZAPINE
  3. COLACE [Concomitant]
     Active Substance: DOCUSATE SODIUM
  4. DIAZEPAM. [Concomitant]
     Active Substance: DIAZEPAM
  5. XIGDUO XR [Concomitant]
     Active Substance: DAPAGLIFLOZIN PROPANEDIOL\METFORMIN HYDROCHLORIDE
  6. DULOXETINE. [Concomitant]
     Active Substance: DULOXETINE
  7. DOXYCYCLINE. [Concomitant]
     Active Substance: DOXYCYCLINE
  8. MULTIVITAMIN [Concomitant]
     Active Substance: VITAMINS
  9. AMOXICILLIN. [Concomitant]
     Active Substance: AMOXICILLIN
  10. HYDROCODONE [Concomitant]
     Active Substance: HYDROCODONE
  11. NAC [Concomitant]
  12. SIMPONI [Suspect]
     Active Substance: GOLIMUMAB
     Indication: ANKYLOSING SPONDYLITIS
     Dates: start: 20170120
  13. ATORVASTATIN [Concomitant]
     Active Substance: ATORVASTATIN

REACTIONS (2)
  - Drug dose omission [None]
  - Surgery [None]

NARRATIVE: CASE EVENT DATE: 20180120
